FAERS Safety Report 8902958 (Version 1)
Quarter: 2012Q4

REPORT INFORMATION
  Report Type: 
  Country: US (occurrence: US)
  Receive Date: 20121113
  Receipt Date: 20121113
  Transmission Date: 20130627
  Serious: Yes (Hospitalization)
  Sender: FDA-Public Use
  Company Number: PHHO2010US15206

PATIENT
  Age: 30 Year
  Sex: Male
  Weight: 81.63 kg

DRUGS (7)
  1. ICL670A [Suspect]
     Indication: HAEMOSIDEROSIS
     Dosage: 1500 mg, QD
     Route: 048
     Dates: start: 2008, end: 20110314
  2. ICL670A [Suspect]
     Dosage: 2000 mg, QD
     Route: 048
     Dates: start: 2008, end: 20110915
  3. LEVAQUIN [Concomitant]
     Dosage: 500 mg, QD
     Route: 042
     Dates: start: 20110315, end: 20110321
  4. LEVAQUIN [Concomitant]
     Dosage: 500 mg, QD
     Route: 048
     Dates: start: 20110322, end: 20110326
  5. PHENERGAN [Concomitant]
     Indication: NAUSEA
     Dosage: 50 mg, QD
     Route: 048
     Dates: start: 20101207, end: 201103
  6. ZYPREXA [Concomitant]
     Dosage: 30 mg, QD
     Route: 048
     Dates: start: 20110329, end: 20110404
  7. COGENTIN [Concomitant]
     Dosage: 1 mg, QD
     Route: 048
     Dates: start: 20110329, end: 20110404

REACTIONS (20)
  - Sickle cell anaemia with crisis [Recovering/Resolving]
  - Pneumonia [Recovering/Resolving]
  - Haemolysis [Recovering/Resolving]
  - Hypotension [Recovering/Resolving]
  - Streptococcal bacteraemia [Recovering/Resolving]
  - Pain [Recovered/Resolved]
  - Back pain [Recovering/Resolving]
  - Device related infection [Recovering/Resolving]
  - Musculoskeletal pain [Not Recovered/Not Resolved]
  - Pain in extremity [Unknown]
  - Arthralgia [Unknown]
  - Psychotic disorder [Recovering/Resolving]
  - Anaemia [Recovered/Resolved]
  - Sepsis [Recovering/Resolving]
  - Acute chest syndrome [Unknown]
  - Confusional state [Recovering/Resolving]
  - Abnormal behaviour [Recovering/Resolving]
  - Lung infiltration [Unknown]
  - Hypoxia [Unknown]
  - Fatigue [Unknown]
